FAERS Safety Report 21338241 (Version 1)
Quarter: 2022Q3

REPORT INFORMATION
  Report Type: Report from Study
  Country: BR (occurrence: BR)
  Receive Date: 20220915
  Receipt Date: 20220915
  Transmission Date: 20221027
  Serious: Yes (Other)
  Sender: FDA-Public Use
  Company Number: BR-NOVARTISPH-NVSC2022BR206045

PATIENT
  Sex: Female

DRUGS (1)
  1. AMLODIPINE\VALSARTAN [Suspect]
     Active Substance: AMLODIPINE\VALSARTAN
     Indication: Product used for unknown indication
     Dosage: UNK (320MG WITH 5 MG OF AMLODIPINE) (START DATE FOR MANY YEARS)
     Route: 065

REACTIONS (5)
  - Gastrointestinal obstruction [Unknown]
  - Gastrooesophageal reflux disease [Unknown]
  - Abdominal distension [Unknown]
  - Nausea [Unknown]
  - Dyspnoea [Unknown]
